FAERS Safety Report 5627009-4 (Version None)
Quarter: 2008Q1

REPORT INFORMATION
  Report Type: 
  Country: None (occurrence: None)
  Receive Date: 20080122
  Receipt Date: 20071015
  Transmission Date: 20080703
  Serious: Yes (Hospitalization, Other)
  Sender: FDA-Public Use
  Company Number: PHEH2007US13550

PATIENT
  Age: 50 Year
  Sex: Male

DRUGS (4)
  1. EXFORGE [Suspect]
     Indication: HYPERTENSION
     Dosage: 5MG AMLO/320MG VALS, QD, ORAL
     Route: 048
     Dates: start: 20070822, end: 20070823
  2. BUMETANIDE [Concomitant]
  3. ZAROXOLYNE (METOLAZONE) [Concomitant]
  4. COREG [Concomitant]

REACTIONS (1)
  - HYPOTENSION [None]
